FAERS Safety Report 8509573-0 (Version None)
Quarter: 2012Q3

REPORT INFORMATION
  Report Type: 
  Country: None (occurrence: None)
  Receive Date: 20120703
  Receipt Date: 20120626
  Transmission Date: 20120928
  Serious: Yes (Other)
  Sender: FDA-Public Use
  Company Number: DKLU1076563

PATIENT
  Age: 51 Year
  Sex: Male

DRUGS (4)
  1. KEPPRA [Concomitant]
  2. SABRIL [Suspect]
     Indication: COMPLEX PARTIAL SEIZURES
     Dosage: 1250;1000 MG 2 IN 1 D, ORAL
     Route: 048
     Dates: start: 20120112
  3. SABRIL [Suspect]
     Indication: COMPLEX PARTIAL SEIZURES
     Dosage: 1250;1000 MG 2 IN 1 D, ORAL
     Route: 048
     Dates: start: 20100401
  4. LAMICTAL [Concomitant]

REACTIONS (3)
  - VISUAL ACUITY REDUCED [None]
  - RETINAL DISORDER [None]
  - VISUAL FIELD DEFECT [None]
